FAERS Safety Report 7553006-8 (Version None)
Quarter: 2011Q2

REPORT INFORMATION
  Report Type: 
  Country: None (occurrence: None)
  Receive Date: 20110616
  Receipt Date: 20070618
  Transmission Date: 20111010
  Serious: Yes (Death, Disabling, Other)
  Sender: FDA-Public Use
  Company Number: US-BAYER-200711906BWH

PATIENT
  Age: 69 Year
  Sex: Female
  Weight: 58.957 kg

DRUGS (16)
  1. TRASYLOL [Suspect]
     Indication: ARTERIAL BYPASS OPERATION
     Dosage: 200 CC PUMP PRIME
     Route: 042
     Dates: start: 20050617, end: 20050617
  2. ACCUPRIL [Concomitant]
     Dosage: 10 MG, QD
     Route: 048
  3. MANNITOL [Concomitant]
     Dosage: UNK
     Route: 042
     Dates: start: 20050617
  4. LASIX [Concomitant]
     Dosage: 20 MG, QD
     Route: 048
  5. ACETYLSALICYLIC ACID SRT [Concomitant]
     Dosage: 81 MG, QD
     Route: 048
  6. DOPAMINE HCL [Concomitant]
     Dosage: UNK
     Route: 042
     Dates: start: 20050617
  7. TRASYLOL [Suspect]
     Indication: CORONARY ARTERY BYPASS
  8. BUMEX [Concomitant]
     Dosage: UNK
     Route: 042
     Dates: start: 20050619
  9. PROTAMINE SULFATE [Concomitant]
     Dosage: UNK
     Route: 042
     Dates: start: 20050617
  10. PLAVIX [Concomitant]
     Dosage: 75 MG, QD
     Route: 048
  11. HEPARIN [Concomitant]
     Dosage: UNK
     Route: 042
     Dates: start: 20050617
  12. BICARBONAT [Concomitant]
     Dosage: UNK
     Route: 042
     Dates: start: 20050617
  13. NIPRIDE [Concomitant]
     Indication: BLOOD PRESSURE MANAGEMENT
     Dosage: UNK
     Route: 042
     Dates: start: 20050622
  14. K-DUR [Concomitant]
     Dosage: 10 MEQ, QD
     Route: 048
  15. NITROGLYCERIN [Concomitant]
     Dosage: 0.4 MG AS NEEDED
     Route: 062
  16. SYNTHROID [Concomitant]
     Dosage: 0.05 MG, QD
     Route: 048

REACTIONS (13)
  - FEAR [None]
  - EMOTIONAL DISTRESS [None]
  - PAIN [None]
  - INJURY [None]
  - ILL-DEFINED DISORDER [None]
  - DISABILITY [None]
  - GENERAL PHYSICAL HEALTH DETERIORATION [None]
  - ADVERSE REACTION [None]
  - DEATH [None]
  - POSTOPERATIVE RENAL FAILURE [None]
  - RENAL FAILURE [None]
  - DEPRESSED MOOD [None]
  - ANXIETY [None]
